FAERS Safety Report 4746256-7 (Version None)
Quarter: 2005Q3

REPORT INFORMATION
  Report Type: 
  Country: None (occurrence: None)
  Receive Date: 20050816
  Receipt Date: 20050801
  Transmission Date: 20060218
  Serious: No
  Sender: FDA-Public Use
  Company Number: US_0502112990

PATIENT
  Sex: Female
  Weight: 59 kg

DRUGS (4)
  1. ZYPREXA [Suspect]
     Indication: SCHIZOPHRENIA
     Dates: start: 19990101, end: 20050101
  2. PAROXETINE [Concomitant]
  3. SERTRALINE HCL [Concomitant]
  4. VENLAFAXINE [Concomitant]

REACTIONS (1)
  - DIABETES MELLITUS [None]
